FAERS Safety Report 10387711 (Version 2)
Quarter: 2014Q3

REPORT INFORMATION
  Report Type: Spontaneous
  Country: DK (occurrence: DK)
  Receive Date: 20140815
  Receipt Date: 20140819
  Transmission Date: 20150326
  Serious: Yes (Hospitalization)
  Sender: FDA-Public Use
  Company Number: DK-JNJFOC-20140811168

PATIENT
  Age: 42 Year
  Sex: Male
  Weight: 110 kg

DRUGS (6)
  1. REMICADE [Suspect]
     Active Substance: INFLIXIMAB
     Indication: CROHN^S DISEASE
     Dosage: STRENGTH 100  MG
     Route: 042
     Dates: start: 20140602
  2. REMICADE [Suspect]
     Active Substance: INFLIXIMAB
     Indication: CROHN^S DISEASE
     Dosage: THERE HAVE BEEN SHORTER BREAKS CONFLICTINGLY REPORTED IN 2003; WITHIN 06-08 WEEKS INTERVAL
     Route: 042
     Dates: start: 2013
  3. LISINOPRIL. [Concomitant]
     Active Substance: LISINOPRIL
     Route: 065
  4. ZANTAC [Concomitant]
     Active Substance: RANITIDINE HYDROCHLORIDE
     Route: 065
  5. REMICADE [Suspect]
     Active Substance: INFLIXIMAB
     Indication: CROHN^S DISEASE
     Dosage: RECEIVED INFLIXIMAB FIRST TIME; STRENGTH 100  MG
     Route: 042
     Dates: start: 2011
  6. REMICADE [Suspect]
     Active Substance: INFLIXIMAB
     Indication: CROHN^S DISEASE
     Dosage: STRENGTH 100  MG
     Route: 042
     Dates: start: 20140217

REACTIONS (1)
  - Pericarditis [Recovered/Resolved]

NARRATIVE: CASE EVENT DATE: 20140404
